FAERS Safety Report 6078536-X (Version None)
Quarter: 2009Q1

REPORT INFORMATION
  Report Type: 
  Country: None (occurrence: None)
  Receive Date: 20090212
  Receipt Date: 20090212
  Transmission Date: 20090719
  Serious: Yes (Life-Threatening)
  Sender: FDA-Public Use
  Company Number: None

PATIENT
  Age: 55 Year
  Sex: Female
  Weight: 54.4316 kg

DRUGS (1)
  1. CARVEDOLOL 12.5 TEVA [Suspect]
     Indication: HYPERTENSION
     Dates: start: 20090119, end: 20090120

REACTIONS (2)
  - ANGIOEDEMA [None]
  - DYSPHAGIA [None]
